FAERS Safety Report 4595945-6 (Version None)
Quarter: 2005Q1

REPORT INFORMATION
  Report Type: 
  Country: None (occurrence: None)
  Receive Date: 20050302
  Receipt Date: 20050224
  Transmission Date: 20050727
  Serious: Yes (Other)
  Sender: FDA-Public Use
  Company Number: CA-JNJFOC-20050205938

PATIENT

DRUGS (1)
  1. LEUSTATIN [Suspect]
     Route: 042

REACTIONS (1)
  - APLASIA PURE RED CELL [None]
